FAERS Safety Report 7653523-6 (Version None)
Quarter: 2011Q3

REPORT INFORMATION
  Report Type: 
  Country: None (occurrence: None)
  Receive Date: 20110803
  Receipt Date: 20110729
  Transmission Date: 20111222
  Serious: No
  Sender: FDA-Public Use
  Company Number: US-BAYER-2011-067048

PATIENT
  Sex: Female

DRUGS (3)
  1. MIRENA [Suspect]
     Indication: POLYCYSTIC OVARIES
  2. MEDIACATION (NOS) [Concomitant]
     Indication: RHEUMATOID ARTHRITIS
  3. MIRENA [Suspect]
     Indication: MENORRHAGIA

REACTIONS (10)
  - METRORRHAGIA [None]
  - DEPRESSION [None]
  - MOOD SWINGS [None]
  - FRUSTRATION [None]
  - ABDOMINAL PAIN [None]
  - PREMENSTRUAL SYNDROME [None]
  - CRYING [None]
  - AMENORRHOEA [None]
  - MENORRHAGIA [None]
  - ANGER [None]
